FAERS Safety Report 5640903-3 (Version None)
Quarter: 2008Q1

REPORT INFORMATION
  Report Type: 
  Country: None (occurrence: None)
  Receive Date: 20080227
  Receipt Date: 20080221
  Transmission Date: 20080703
  Serious: Yes (Hospitalization)
  Sender: FDA-Public Use
  Company Number: B0509952A

PATIENT
  Age: 73 Year
  Sex: Female

DRUGS (9)
  1. AMOXICILLIN + CLAVULANATE POTASSIUM [Suspect]
     Indication: BRONCHOPNEUMONIA
     Route: 065
     Dates: start: 20080101, end: 20080105
  2. TRITACE [Concomitant]
     Indication: CARDIAC FAILURE CHRONIC
     Route: 065
  3. VEROSPIRON [Concomitant]
     Indication: CARDIAC FAILURE CHRONIC
     Route: 065
  4. ANOPYRIN [Concomitant]
     Indication: MYOCARDIAL ISCHAEMIA
     Route: 065
  5. PLAVIX [Concomitant]
     Indication: MYOCARDIAL ISCHAEMIA
     Route: 065
  6. FURON [Concomitant]
     Indication: CARDIAC FAILURE CHRONIC
     Route: 065
  7. QUAMATEL [Concomitant]
     Indication: PROPHYLAXIS AGAINST GASTROINTESTINAL ULCER
     Route: 065
  8. PREDUCTAL [Concomitant]
     Indication: MYOCARDIAL ISCHAEMIA
     Route: 065
  9. LUCETAM [Concomitant]
     Indication: ARTERIOSCLEROSIS
     Route: 065

REACTIONS (2)
  - RASH MACULO-PAPULAR [None]
  - TOXIC SKIN ERUPTION [None]
